FAERS Safety Report 4596430-8 (Version None)
Quarter: 2005Q1

REPORT INFORMATION
  Report Type: 
  Country: None (occurrence: None)
  Receive Date: 20050228
  Receipt Date: 20050215
  Transmission Date: 20050727
  Serious: Yes (Other)
  Sender: FDA-Public Use
  Company Number: 2005032358

PATIENT
  Age: 40 Year
  Sex: Female
  Weight: 116 kg

DRUGS (8)
  1. ATORVASTATIN (ATORVASTATIN) [Suspect]
     Indication: BLOOD CHOLESTEROL INCREASED
     Dosage: (10 MG), ORAL
     Route: 048
     Dates: start: 20020910, end: 20050117
  2. TRIMETHOPRIM [Concomitant]
  3. LISINOPRIL [Concomitant]
  4. TRAZODONE (TRAZODONE) [Concomitant]
  5. TRIFLUOPERAZINE (TRIFLUOPERAZINE) [Concomitant]
  6. DIAZEPAM [Concomitant]
  7. OMEPRAZOLE [Concomitant]
  8. LEVONORGESTREL [Concomitant]

REACTIONS (2)
  - AGGRESSION [None]
  - ANGER [None]
